FAERS Safety Report 14661473 (Version 1)
Quarter: 2018Q1

REPORT INFORMATION
  Report Type: Spontaneous
  Country: US (occurrence: US)
  Receive Date: 20180320
  Receipt Date: 20180320
  Transmission Date: 20180509
  Serious: No
  Sender: FDA-Public Use
  Company Number: US-ACTELION-A-NJ2018-169281

PATIENT
  Age: 70 Year
  Sex: Female

DRUGS (5)
  1. TYVASO [Suspect]
     Active Substance: TREPROSTINIL
     Indication: PULMONARY ARTERIAL HYPERTENSION
     Dosage: 36-54 MCG, QID INHALATION
     Route: 055
     Dates: start: 20160804
  2. UPTRAVI [Suspect]
     Active Substance: SELEXIPAG
     Indication: PULMONARY ARTERIAL HYPERTENSION
     Dosage: 600 UNK, UNK
     Route: 048
     Dates: start: 20160215
  3. OPSUMIT [Concomitant]
     Active Substance: MACITENTAN
  4. ADCIRCA [Concomitant]
     Active Substance: TADALAFIL
  5. WARFARIN [Concomitant]
     Active Substance: WARFARIN

REACTIONS (10)
  - Pain [Unknown]
  - Pain in jaw [Unknown]
  - Cough [Unknown]
  - Throat irritation [Unknown]
  - Arthralgia [Unknown]
  - Feeling abnormal [Unknown]
  - Pain in extremity [Unknown]
  - Muscle spasms [Unknown]
  - Nausea [Unknown]
  - Myalgia [Unknown]
